FAERS Safety Report 9100984 (Version 1)
Quarter: 2013Q1

REPORT INFORMATION
  Report Type: Spontaneous
  Country: CH (occurrence: CH)
  Receive Date: 20130214
  Receipt Date: 20130214
  Transmission Date: 20140127
  Serious: Yes (Life-Threatening, Hospitalization, Other)
  Sender: FDA-Public Use
  Company Number: CH-PFIZER INC-2013057536

PATIENT
  Age: 61 Year
  Sex: Male
  Weight: 96 kg

DRUGS (2)
  1. SUTENT [Suspect]
     Indication: METASTATIC RENAL CELL CARCINOMA
     Dosage: 37.5 MG, 1X/DAY
     Route: 048
     Dates: start: 201106, end: 20121124
  2. PANTOPRAZOL [Concomitant]
     Dosage: 40 MG, 1X/DAY (IRREGULAR ADMINISTRATION)
     Route: 048
     Dates: start: 20120116

REACTIONS (1)
  - Myocardial infarction [Recovering/Resolving]
